FAERS Safety Report 8717303 (Version 3)
Quarter: 2012Q4

REPORT INFORMATION
  Report Type: 
  Country: CA (occurrence: CA)
  Receive Date: 20120810
  Receipt Date: 20120917
  Transmission Date: 20130627
  Serious: Yes (Life-Threatening, Hospitalization, Disabling)
  Sender: FDA-Public Use
  Company Number: CA-SANOFI-AVENTIS-2012SA055671

PATIENT
  Age: 64 Year
  Sex: Male

DRUGS (2)
  1. LOVENOX [Suspect]
     Indication: CARDIAC ABLATION
     Route: 058
     Dates: start: 20120323, end: 20120325
  2. LOVENOX [Suspect]
     Indication: CARDIAC ABLATION
     Dosage: end treatment: 16 or 19-Mar-2012
     Route: 065
     Dates: start: 20120309, end: 20120317

REACTIONS (3)
  - Cerebrovascular accident [Recovering/Resolving]
  - Drug dose omission [Unknown]
  - Product quality issue [Unknown]
